FAERS Safety Report 8272244-2 (Version None)
Quarter: 2012Q2

REPORT INFORMATION
  Report Type: 
  Country: None (occurrence: None)
  Receive Date: 20120410
  Receipt Date: 20120329
  Transmission Date: 20120825
  Serious: Yes (Other)
  Sender: FDA-Public Use
  Company Number: PHHY2011JP86451

PATIENT
  Age: 72 Year
  Sex: Female

DRUGS (4)
  1. HUMIRA [Concomitant]
     Indication: PSORIASIS
     Dosage: UNK UKN, UNK
     Route: 058
     Dates: start: 20100801, end: 20101201
  2. INFLIXIMAB [Suspect]
     Dosage: UNK UKN, UNK
     Dates: start: 20100801
  3. ADALIMUMAB [Suspect]
     Indication: PSORIASIS
     Dosage: UNK UKN, UNK
     Route: 058
  4. NEORAL [Suspect]
     Indication: PSORIASIS
     Dosage: UNK UKN, UNK
     Route: 048
     Dates: end: 20100801

REACTIONS (5)
  - INTERSTITIAL LUNG DISEASE [None]
  - DYSPNOEA [None]
  - RASH [None]
  - PYREXIA [None]
  - COUGH [None]
